FAERS Safety Report 8593154 (Version 2)
Quarter: 2013Q3

REPORT INFORMATION
  Report Type: Spontaneous
  Country: US (occurrence: US)
  Receive Date: 20120604
  Receipt Date: 20130905
  Transmission Date: 20140515
  Serious: Yes (Death, Other)
  Sender: FDA-Public Use
  Company Number: US-ASTRAZENECA-2012SE34828

PATIENT
  Age: 790 Month
  Sex: Male

DRUGS (1)
  1. NEXIUM [Suspect]
     Route: 048

REACTIONS (6)
  - Death [Fatal]
  - Cerebrovascular accident [Unknown]
  - Osteoporosis [Unknown]
  - Multiple fractures [Unknown]
  - Gastric disorder [Unknown]
  - Aneurysm [Unknown]
